FAERS Safety Report 23027131 (Version 3)
Quarter: 2024Q1

REPORT INFORMATION
  Report Type: Spontaneous
  Country: US (occurrence: US)
  Receive Date: 20231004
  Receipt Date: 20240119
  Transmission Date: 20240409
  Serious: No
  Sender: FDA-Public Use
  Company Number: US-JNJFOC-20230968161

PATIENT
  Age: 68 Year
  Sex: Male
  Weight: 69.916 kg

DRUGS (4)
  1. INVEGA HAFYERA [Suspect]
     Active Substance: PALIPERIDONE PALMITATE
     Indication: Schizophrenia
     Dosage: 6 (AS REQUIRED)
     Route: 030
     Dates: start: 20220210, end: 20230914
  2. INVEGA HAFYERA [Suspect]
     Active Substance: PALIPERIDONE PALMITATE
     Dosage: 6 (AS REQUIRED)
     Route: 030
     Dates: start: 20211020
  3. INVEGA HAFYERA [Suspect]
     Active Substance: PALIPERIDONE PALMITATE
     Route: 030
  4. TRILEPTAL [Concomitant]
     Active Substance: OXCARBAZEPINE
     Indication: Seizure
     Route: 048
     Dates: start: 20210114

REACTIONS (3)
  - Device malfunction [Unknown]
  - Underdose [Unknown]
  - Needle issue [Unknown]

NARRATIVE: CASE EVENT DATE: 20230914
